FAERS Safety Report 6102890-3 (Version None)
Quarter: 2009Q1

REPORT INFORMATION
  Report Type: 
  Country: None (occurrence: None)
  Receive Date: 20090303
  Receipt Date: 20090303
  Transmission Date: 20090719
  Serious: Yes (Life-Threatening)
  Sender: FDA-Public Use
  Company Number: None

PATIENT
  Age: 69 Year
  Sex: Female
  Weight: 70.3075 kg

DRUGS (1)
  1. AMBIEN CR [Suspect]
     Indication: INSOMNIA
     Dosage: 1 AT BEDTIME ONE PER DAY PO
     Route: 048
     Dates: start: 20090110, end: 20090117

REACTIONS (2)
  - SUICIDAL IDEATION [None]
  - THINKING ABNORMAL [None]
